FAERS Safety Report 18737234 (Version 4)
Quarter: 2021Q3

REPORT INFORMATION
  Report Type: Report from Study
  Country: MX (occurrence: MX)
  Receive Date: 20210113
  Receipt Date: 20210901
  Transmission Date: 20211014
  Serious: Yes (Other)
  Sender: FDA-Public Use
  Company Number: NVSC2020MX138107

PATIENT
  Age: 49 Year
  Sex: Male
  Weight: 70 kg

DRUGS (10)
  1. COSENTYX [Suspect]
     Active Substance: SECUKINUMAB
     Dosage: UNK (TAKEN FOR 5 WEEKS)
     Route: 065
     Dates: start: 20200415
  2. COSENTYX [Suspect]
     Active Substance: SECUKINUMAB
     Dosage: 300 MG, QMO (2 PENS)
     Route: 058
     Dates: start: 202006
  3. COSENTYX [Suspect]
     Active Substance: SECUKINUMAB
     Indication: PSORIASIS
     Dosage: 300 MG, QMO
     Route: 058
  4. COSENTYX [Suspect]
     Active Substance: SECUKINUMAB
     Dosage: 300 MG,  (2 DOSE) QMO
     Route: 058
  5. COSENTYX [Suspect]
     Active Substance: SECUKINUMAB
     Dosage: 300 MG, QMO
     Route: 030
  6. TASEDAN [Concomitant]
     Dosage: 1 DF
     Route: 048
     Dates: start: 2019
  7. COSENTYX [Suspect]
     Active Substance: SECUKINUMAB
     Dosage: 300 MG (2 DOSE), QW
     Route: 058
     Dates: start: 20200318
  8. COSENTYX [Suspect]
     Active Substance: SECUKINUMAB
     Dosage: 300 MG, (150MG) QMO
     Route: 058
     Dates: start: 20200318
  9. COSENTYX [Suspect]
     Active Substance: SECUKINUMAB
     Dosage: 300 MG, QMO
     Route: 058
     Dates: start: 202005
  10. TASEDAN [Concomitant]
     Indication: SLEEP DISORDER
     Dosage: 1 DF (2 MG), QD
     Route: 048
     Dates: start: 2017

REACTIONS (27)
  - Weight increased [Recovering/Resolving]
  - Blood urine [Recovered/Resolved]
  - Feeling abnormal [Unknown]
  - Product prescribing error [Unknown]
  - Therapeutic product effect incomplete [Not Recovered/Not Resolved]
  - Scar [Recovered/Resolved]
  - Vision blurred [Recovered/Resolved]
  - Dysuria [Not Recovered/Not Resolved]
  - Urethral pain [Unknown]
  - Incorrect dose administered [Unknown]
  - Pain [Unknown]
  - Crying [Recovered/Resolved]
  - Prostatitis [Recovering/Resolving]
  - Bacterial infection [Recovering/Resolving]
  - Vision blurred [Not Recovered/Not Resolved]
  - Abdominal pain [Recovered/Resolved]
  - Urethritis [Not Recovered/Not Resolved]
  - Drug ineffective [Recovering/Resolving]
  - Hyperplasia [Recovering/Resolving]
  - Bladder disorder [Unknown]
  - Micturition disorder [Unknown]
  - Condition aggravated [Unknown]
  - Prostatic adenoma [Recovered/Resolved]
  - Visual impairment [Not Recovered/Not Resolved]
  - Depression [Recovering/Resolving]
  - Skin exfoliation [Not Recovered/Not Resolved]
  - Weight decreased [Unknown]

NARRATIVE: CASE EVENT DATE: 20200318
